FAERS Safety Report 14082405 (Version 2)
Quarter: 2018Q1

REPORT INFORMATION
  Report Type: Spontaneous
  Country: FR (occurrence: FR)
  Receive Date: 20171013
  Receipt Date: 20180102
  Transmission Date: 20180508
  Serious: Yes (Hospitalization)
  Sender: FDA-Public Use
  Company Number: FR-ASTRAZENECA-2017SF02848

PATIENT
  Age: 25904 Day
  Sex: Male
  Weight: 60.2 kg

DRUGS (13)
  1. VITAMINE B12 [Concomitant]
     Active Substance: CYANOCOBALAMIN
     Dosage: 250 MICROG, DAILY
     Dates: end: 20170812
  2. INEXIUM [Suspect]
     Active Substance: ESOMEPRAZOLE
     Indication: PROPHYLAXIS
     Route: 048
     Dates: start: 20170423, end: 20170812
  3. ZYMAD [Concomitant]
     Active Substance: CHOLECALCIFEROL
     Dosage: 1 DF /  2 MONTHS
  4. KAYEXALATE [Concomitant]
     Active Substance: SODIUM POLYSTYRENE SULFONATE
     Dosage: 15 G X3/ WEEK
  5. CALCIUM CARBONATE. [Concomitant]
     Active Substance: CALCIUM CARBONATE
     Dates: end: 20170812
  6. ENDOXAN [Suspect]
     Active Substance: CYCLOPHOSPHAMIDE
     Indication: VASCULITIS
     Dosage: 1 DF / CYCLE
     Route: 042
     Dates: start: 20170430, end: 20170717
  7. GALVUS [Suspect]
     Active Substance: VILDAGLIPTIN
     Indication: TYPE 2 DIABETES MELLITUS
     Route: 048
     Dates: start: 20170501, end: 20170812
  8. SPECIAFOLDINE [Concomitant]
     Active Substance: FOLIC ACID
     Dates: end: 20170812
  9. CORTANCYL [Concomitant]
     Active Substance: PREDNISONE
     Dosage: 13 MG WITH PROGRESSIVE DECREASE DOSE
  10. BACTRIM [Suspect]
     Active Substance: SULFAMETHOXAZOLE\TRIMETHOPRIM
     Indication: ANTIVIRAL PROPHYLAXIS
     Dosage: 1 DF X3 / WEEK
     Route: 048
     Dates: start: 20170428, end: 20170807
  11. COUMADINE [Concomitant]
     Active Substance: WARFARIN SODIUM
     Indication: PULMONARY EMBOLISM
     Dosage: ALTERNANCE 4MG J1 ET 5MG J2
     Route: 048
     Dates: start: 201705, end: 20170815
  12. COUMADINE [Concomitant]
     Active Substance: WARFARIN SODIUM
     Indication: PULMONARY EMBOLISM
     Route: 048
  13. IMOVANE [Concomitant]
     Active Substance: ZOPICLONE

REACTIONS (3)
  - Pruritus [Recovered/Resolved]
  - Eosinophilia [Recovered/Resolved]
  - Rash maculo-papular [Recovered/Resolved]

NARRATIVE: CASE EVENT DATE: 20170803
